FAERS Safety Report 12588537 (Version 2)
Quarter: 2016Q4

REPORT INFORMATION
  Report Type: Spontaneous
  Country: US (occurrence: US)
  Receive Date: 20160725
  Receipt Date: 20161014
  Transmission Date: 20170207
  Serious: No
  Sender: FDA-Public Use
  Company Number: US-JNJFOC-20160702672

PATIENT
  Sex: Male

DRUGS (2)
  1. BENZTROPINE [Concomitant]
     Active Substance: BENZTROPINE
     Indication: MUSCLE RELAXANT THERAPY
     Route: 065
  2. TYLENOL EXTRA STRENGTH [Suspect]
     Active Substance: ACETAMINOPHEN
     Indication: PARKINSON^S DISEASE
     Dosage: SHE TOOK AT 6AM, 12, AND THEN 6
     Route: 048

REACTIONS (4)
  - Therapeutic response unexpected [Unknown]
  - Product use issue [Unknown]
  - Product packaging issue [Unknown]
  - Off label use [Unknown]
